FAERS Safety Report 6626860-1 (Version None)
Quarter: 2010Q1

REPORT INFORMATION
  Report Type: 
  Country: None (occurrence: None)
  Receive Date: 20100308
  Receipt Date: 20100222
  Transmission Date: 20100710
  Serious: Yes (Life-Threatening, Hospitalization)
  Sender: FDA-Public Use
  Company Number: 2010AL001218

PATIENT
  Age: 74 Year
  Sex: Female

DRUGS (3)
  1. FEVERALL [Suspect]
     Indication: PAIN
     Dosage: 1 GM; QID; PO
     Route: 048
     Dates: end: 20100209
  2. SINTHROME [Concomitant]
  3. CODEINE SULFATE [Concomitant]

REACTIONS (1)
  - INTERNATIONAL NORMALISED RATIO INCREASED [None]
